FAERS Safety Report 9134052 (Version 1)
Quarter: 2013Q1

REPORT INFORMATION
  Report Type: Spontaneous
  Country: US (occurrence: None)
  Receive Date: 20130227
  Receipt Date: 20130227
  Transmission Date: 20140127
  Serious: Yes (Death)
  Sender: FDA-Public Use
  Company Number: None

PATIENT
  Age: 50 Day
  Sex: Male
  Weight: 4.08 kg

DRUGS (2)
  1. FLECAINIDE [Suspect]
     Indication: WOLFF-PARKINSON-WHITE SYNDROME
     Route: 048
     Dates: start: 20120409, end: 20120524
  2. PROPANOLOL [Suspect]
     Indication: WOLFF-PARKINSON-WHITE SYNDROME
     Route: 048
     Dates: start: 20120409, end: 20120524

REACTIONS (2)
  - Oxygen saturation decreased [None]
  - Cardiac disorder [None]
